FAERS Safety Report 14115997 (Version 3)
Quarter: 2018Q1

REPORT INFORMATION
  Report Type: Spontaneous
  Country: TR (occurrence: TR)
  Receive Date: 20171023
  Receipt Date: 20180108
  Transmission Date: 20180508
  Serious: Yes (Disabling)
  Sender: FDA-Public Use
  Company Number: TR-ROCHE-2012413

PATIENT
  Age: 14 Year
  Sex: Female

DRUGS (1)
  1. SAIZEN [Suspect]
     Active Substance: SOMATROPIN
     Indication: GROWTH HORMONE DEFICIENCY
     Dosage: (0.22 MG/KG/WEEK)
     Route: 065
     Dates: start: 20091222, end: 20101208

REACTIONS (1)
  - Tenosynovitis stenosans [Recovering/Resolving]

NARRATIVE: CASE EVENT DATE: 201010
